FAERS Safety Report 9667456 (Version 1)
Quarter: 2013Q4

REPORT INFORMATION
  Report Type: Spontaneous
  Country: US (occurrence: US)
  Receive Date: 20131101
  Receipt Date: 20131101
  Transmission Date: 20140711
  Serious: Yes (Other)
  Sender: FDA-Public Use
  Company Number: US-SAVIENT-2012S1000062

PATIENT
  Age: 74 Year
  Sex: Male
  Weight: 79.38 kg

DRUGS (10)
  1. KRYSTEXXA INJECTION [Suspect]
     Indication: GOUT
     Route: 042
     Dates: start: 20120613, end: 20120613
  2. KRYSTEXXA INJECTION [Suspect]
     Indication: GOUT
     Route: 042
     Dates: start: 20120530, end: 20120530
  3. KRYSTEXXA INJECTION [Suspect]
     Indication: GOUT
     Route: 042
     Dates: start: 20120516, end: 20120516
  4. KRYSTEXXA INJECTION [Suspect]
     Indication: GOUT
     Route: 042
     Dates: start: 20120502, end: 20120502
  5. DECADRON /00016002/ [Concomitant]
     Indication: PREMEDICATION
     Dates: start: 20120613, end: 20120613
  6. DECADRON /00016002/ [Concomitant]
     Indication: PREMEDICATION
     Dates: start: 20120502, end: 20120530
  7. BENADRYL /00000402/ [Concomitant]
     Indication: PREMEDICATION
     Route: 042
     Dates: start: 20120502, end: 20120613
  8. TYLENOL /00020001/ [Concomitant]
     Indication: PREMEDICATION
     Dates: start: 20120502, end: 20120613
  9. PREDNISONE [Concomitant]
     Indication: PRODUCT USED FOR UNKNOWN INDICATION
  10. KINERET [Concomitant]
     Indication: RHEUMATOID ARTHRITIS

REACTIONS (2)
  - Infusion related reaction [Recovered/Resolved]
  - Therapeutic response decreased [Unknown]
